FAERS Safety Report 18100629 (Version 2)
Quarter: 2021Q1

REPORT INFORMATION
  Report Type: Spontaneous
  Country: JP (occurrence: JP)
  Receive Date: 20200731
  Receipt Date: 20210316
  Transmission Date: 20210419
  Serious: Yes (Other)
  Sender: FDA-Public Use
  Company Number: JP-DSJP-DSJ-2020-121709AA

PATIENT
  Age: 74 Year
  Sex: Female

DRUGS (1)
  1. OLMETEC OD [Suspect]
     Active Substance: OLMESARTAN MEDOXOMIL
     Indication: HYPERTENSION
     Dosage: UNK
     Route: 048

REACTIONS (1)
  - Colitis microscopic [Recovered/Resolved]
